FAERS Safety Report 21746966 (Version 3)
Quarter: 2023Q1

REPORT INFORMATION
  Report Type: Report from Study
  Country: US (occurrence: US)
  Receive Date: 20221219
  Receipt Date: 20230328
  Transmission Date: 20230417
  Serious: No
  Sender: FDA-Public Use
  Company Number: US-002147023-NVSC2022US292540

PATIENT
  Sex: Male

DRUGS (2)
  1. COSENTYX [Suspect]
     Active Substance: SECUKINUMAB
     Indication: Psoriasis
     Dosage: UNK UNK, QMO (150 MG/ML SENSOREADY PEN)
     Route: 058
  2. COSENTYX [Suspect]
     Active Substance: SECUKINUMAB
     Dosage: 150 MG, QMO
     Route: 050
     Dates: start: 20221201, end: 20230316

REACTIONS (6)
  - Rash [Unknown]
  - Oropharyngeal pain [Unknown]
  - Pruritus [Unknown]
  - Hordeolum [Unknown]
  - Psoriasis [Unknown]
  - Inappropriate schedule of product administration [Unknown]
